FAERS Safety Report 22939098 (Version 4)
Quarter: 2023Q4

REPORT INFORMATION
  Report Type: Spontaneous
  Country: RU (occurrence: RU)
  Receive Date: 20230913
  Receipt Date: 20231011
  Transmission Date: 20240110
  Serious: Yes (Other)
  Sender: FDA-Public Use
  Company Number: RU-China IPSEN SC-2023-21551

PATIENT
  Age: 16 Year
  Sex: Female
  Weight: 32 kg

DRUGS (1)
  1. DYSPORT [Suspect]
     Active Substance: ABOBOTULINUMTOXINA
     Indication: Muscle spasticity
     Dosage: SEMITENDINOS US 1+1 POINT (80 U ON THE RIGHT +80 U ON THE LEFT), SEMIMEMBRA NOSUS 1+1 POINT (80 U+80
     Route: 030
     Dates: start: 20230831, end: 20230831

REACTIONS (2)
  - Loss of consciousness [Recovered/Resolved]
  - Cardiac arrest [Recovered/Resolved]

NARRATIVE: CASE EVENT DATE: 20230831
